FAERS Safety Report 17206833 (Version 1)
Quarter: 2019Q4

REPORT INFORMATION
  Report Type: Spontaneous
  Country: CN (occurrence: CN)
  Receive Date: 20191227
  Receipt Date: 20191227
  Transmission Date: 20200122
  Serious: Yes (Other)
  Sender: FDA-Public Use
  Company Number: CN-ELI_LILLY_AND_COMPANY-CN201912012487

PATIENT
  Age: 62 Year
  Sex: Male
  Weight: 60 kg

DRUGS (4)
  1. GEMZAR [Suspect]
     Active Substance: GEMCITABINE HYDROCHLORIDE
     Indication: HEPATOBILIARY CANCER
     Dosage: 1600 MG, DAILY
     Route: 065
     Dates: start: 20191216, end: 20191216
  2. SODIUM CHLORIDE. [Concomitant]
     Active Substance: SODIUM CHLORIDE
     Dosage: 100 ML, DAILY
     Route: 065
     Dates: start: 20191216, end: 20191216
  3. GLUCOSE [Concomitant]
     Active Substance: DEXTROSE
     Dosage: 500 ML, DAILY
     Route: 065
     Dates: start: 20191216, end: 20191216
  4. ELOXATIN [Suspect]
     Active Substance: OXALIPLATIN
     Indication: HEPATOBILIARY CANCER
     Dosage: 150 MG, DAILY
     Route: 065
     Dates: start: 20191216, end: 20191216

REACTIONS (1)
  - Hyperpyrexia [Recovered/Resolved]

NARRATIVE: CASE EVENT DATE: 20191216
